FAERS Safety Report 16471058 (Version 1)
Quarter: 2019Q2

REPORT INFORMATION
  Report Type: Spontaneous
  Country: US (occurrence: US)
  Receive Date: 20190624
  Receipt Date: 20190624
  Transmission Date: 20190711
  Serious: No
  Sender: FDA-Public Use
  Company Number: US-TEVA-2019-US-1062257

PATIENT
  Age: 3 Month
  Sex: Female

DRUGS (2)
  1. PREDNISONE TEVA [Suspect]
     Active Substance: PREDNISONE
     Indication: BRONCHOPULMONARY ASPERGILLOSIS ALLERGIC
     Route: 064
     Dates: start: 2016
  2. PREDNISONE TEVA [Suspect]
     Active Substance: PREDNISONE
     Indication: BRONCHIECTASIS
     Route: 063

REACTIONS (4)
  - Cow^s milk intolerance [Unknown]
  - Foetal exposure during pregnancy [Unknown]
  - Exposure via breast milk [Unknown]
  - Milk soy protein intolerance [Unknown]

NARRATIVE: CASE EVENT DATE: 2018
